FAERS Safety Report 18140225 (Version 1)
Quarter: 2020Q3

REPORT INFORMATION
  Report Type: Report from Study
  Country: BR (occurrence: BR)
  Receive Date: 20200812
  Receipt Date: 20200812
  Transmission Date: 20201103
  Serious: Yes (Hospitalization)
  Sender: FDA-Public Use
  Company Number: PHHY2019BR104072

PATIENT
  Age: 59 Year
  Sex: Female

DRUGS (5)
  1. COSENTYX [Suspect]
     Active Substance: SECUKINUMAB
     Dosage: UNK
     Route: 065
     Dates: start: 20200122
  2. COSENTYX [Suspect]
     Active Substance: SECUKINUMAB
     Indication: PSORIASIS
     Dosage: UNK, UNKNOWN
     Route: 065
     Dates: start: 20181112
  3. COSENTYX [Suspect]
     Active Substance: SECUKINUMAB
     Dosage: UNK, UNKNOWN
     Route: 065
     Dates: start: 20200722
  4. COSENTYX [Suspect]
     Active Substance: SECUKINUMAB
     Dosage: UNK
     Route: 065
     Dates: start: 20190426
  5. COSENTYX [Suspect]
     Active Substance: SECUKINUMAB
     Dosage: UNK UNK, UNKNOWN
     Route: 065
     Dates: start: 201812

REACTIONS (14)
  - Nail psoriasis [Recovering/Resolving]
  - Nervousness [Recovered/Resolved]
  - Anxiety [Unknown]
  - Morton^s neuralgia [Not Recovered/Not Resolved]
  - Psoriasis [Recovering/Resolving]
  - Gait inability [Recovered/Resolved]
  - Memory impairment [Unknown]
  - Hyperkeratosis [Unknown]
  - Skin burning sensation [Recovering/Resolving]
  - Inappropriate schedule of product administration [Unknown]
  - Burning sensation [Unknown]
  - Morton^s neuralgia [Recovered/Resolved]
  - Influenza [Recovered/Resolved]
  - Tonsillitis [Recovered/Resolved]

NARRATIVE: CASE EVENT DATE: 201903
